FAERS Safety Report 17560750 (Version 1)
Quarter: 2020Q1

REPORT INFORMATION
  Report Type: Spontaneous
  Country: DE (occurrence: DE)
  Receive Date: 20200319
  Receipt Date: 20200319
  Transmission Date: 20200409
  Serious: Yes (Other)
  Sender: FDA-Public Use
  Company Number: DE-PFIZER INC-2020114715

PATIENT
  Sex: Female

DRUGS (1)
  1. CYTOTEC [Suspect]
     Active Substance: MISOPROSTOL
     Indication: LABOUR INDUCTION
     Dosage: 1/2 TABLET EVERY 4 HOURS
     Route: 064
     Dates: start: 20180604, end: 20180606

REACTIONS (2)
  - Foetal exposure during pregnancy [Unknown]
  - Foetal heart rate decreased [Unknown]

NARRATIVE: CASE EVENT DATE: 20180604
